FAERS Safety Report 13748189 (Version 1)
Quarter: 2017Q3

REPORT INFORMATION
  Report Type: Spontaneous
  Country: FR (occurrence: FR)
  Receive Date: 20170713
  Receipt Date: 20170713
  Transmission Date: 20171127
  Serious: Yes (Other)
  Sender: FDA-Public Use
  Company Number: FR-CONCORDIA PHARMACEUTICALS INC.-GSH201707-004008

PATIENT
  Age: 74 Year
  Sex: Male

DRUGS (1)
  1. ALFUZOSIN 10 MG [Suspect]
     Active Substance: ALFUZOSIN
     Indication: PROSTATOMEGALY
     Route: 048
     Dates: start: 20170224, end: 20170428

REACTIONS (1)
  - Visual impairment [Recovered/Resolved]

NARRATIVE: CASE EVENT DATE: 201704
